FAERS Safety Report 10426269 (Version 1)
Quarter: 2014Q3

REPORT INFORMATION
  Report Type: Spontaneous
  Country: US (occurrence: US)
  Receive Date: 20140903
  Receipt Date: 20140903
  Transmission Date: 20150326
  Serious: Yes (Hospitalization, Other)
  Sender: FDA-Public Use
  Company Number: PHHY2014US109169

PATIENT
  Age: 62 Year
  Sex: Male

DRUGS (1)
  1. IMATINIB [Suspect]
     Active Substance: IMATINIB
     Indication: GASTROINTESTINAL STROMAL TUMOUR
     Dosage: 400 MG, DAILY
     Route: 048
     Dates: start: 200905

REACTIONS (9)
  - Hepatic encephalopathy [Unknown]
  - Transaminases increased [Unknown]
  - Vomiting [Unknown]
  - Hepatitis B [Unknown]
  - Confusional state [Unknown]
  - Biliary tract disorder [Unknown]
  - Nausea [Unknown]
  - Acute hepatic failure [Unknown]
  - Renal failure [Unknown]

NARRATIVE: CASE EVENT DATE: 200911
